FAERS Safety Report 8809020 (Version 1)
Quarter: 2012Q4

REPORT INFORMATION
  Report Type: Report from Study
  Country: US (occurrence: US)
  Receive Date: 20120926
  Receipt Date: 20120926
  Transmission Date: 20130627
  Serious: Yes (Hospitalization)
  Sender: FDA-Public Use
  Company Number: US-ASTRAZENECA-2012SE26102

PATIENT
  Sex: Male
  Weight: 98.6 kg

DRUGS (42)
  1. MS-CONTIN [Suspect]
     Indication: INTERVERTEBRAL DISC PROTRUSION
     Route: 048
     Dates: start: 2003, end: 20120329
  2. MS-CONTIN [Suspect]
     Indication: INTERVERTEBRAL DISC PROTRUSION
     Route: 048
     Dates: start: 20120330, end: 20120331
  3. NKTR-118 [Suspect]
     Indication: CONSTIPATION
     Route: 048
     Dates: start: 20120127, end: 20120417
  4. ALBUTEROL [Concomitant]
     Indication: DYSPNOEA
     Route: 055
     Dates: start: 2010, end: 20120331
  5. ALBUTEROL [Concomitant]
     Indication: DYSPNOEA
     Dosage: 0.83 mg/ml every four hour
     Route: 055
     Dates: start: 20120401, end: 20120401
  6. ALBUTEROL [Concomitant]
     Indication: DYSPNOEA
     Dosage: One puff four times a day
     Route: 055
     Dates: start: 20120403
  7. BUPROPION [Concomitant]
     Indication: POST-TRAUMATIC STRESS DISORDER
     Route: 048
     Dates: start: 2003, end: 20120331
  8. BUPROPION [Concomitant]
     Indication: POST-TRAUMATIC STRESS DISORDER
     Route: 048
     Dates: start: 20120403
  9. CARBAMAZEPINE [Concomitant]
     Indication: POST-TRAUMATIC STRESS DISORDER
     Route: 048
     Dates: start: 2003, end: 20120331
  10. CARBAMAZEPINE [Concomitant]
     Indication: POST-TRAUMATIC STRESS DISORDER
     Route: 048
     Dates: start: 20120403
  11. CITALOPRAM HYDROBROMIDE [Concomitant]
     Indication: POST-TRAUMATIC STRESS DISORDER
     Route: 048
     Dates: start: 2003, end: 20120331
  12. ERGOCALCIFEROL [Concomitant]
     Indication: VITAMIN D DEFICIENCY
     Route: 048
     Dates: start: 201107
  13. FLUNISOLIDE [Concomitant]
     Indication: SEASONAL ALLERGY
     Dosage: 0.025 UNIT PERCENTS, TWO TIMES PER NOSTRIL
     Route: 045
     Dates: start: 2010
  14. LORATADINE [Concomitant]
     Indication: SEASONAL ALLERGY
     Route: 048
     Dates: start: 2010
  15. METOPROLOL TARTRATE [Concomitant]
     Indication: HYPERTENSION
     Route: 048
     Dates: start: 2009
  16. OMEPRAZOLE [Concomitant]
     Indication: GASTROOESOPHAGEAL REFLUX DISEASE
     Route: 048
     Dates: start: 2008, end: 20120331
  17. OMEPRAZOLE [Concomitant]
     Indication: GASTROOESOPHAGEAL REFLUX DISEASE
     Route: 048
     Dates: start: 20120404
  18. POTASSIUM CHLORIDE [Concomitant]
     Indication: BLOOD POTASSIUM DECREASED
     Route: 048
     Dates: start: 2009, end: 20120331
  19. POTASSIUM CHLORIDE [Concomitant]
     Indication: BLOOD POTASSIUM DECREASED
     Route: 048
     Dates: start: 20120402, end: 20120402
  20. POTASSIUM CHLORIDE [Concomitant]
     Indication: BLOOD POTASSIUM DECREASED
     Route: 048
     Dates: start: 20120403, end: 20120403
  21. POTASSIUM CHLORIDE [Concomitant]
     Indication: BLOOD POTASSIUM DECREASED
     Route: 048
     Dates: start: 20120404
  22. SIMVASTATIN [Concomitant]
     Indication: HYPERLIPIDAEMIA
     Route: 048
     Dates: start: 2009, end: 20120331
  23. SIMVASTATIN [Concomitant]
     Indication: HYPERLIPIDAEMIA
     Route: 048
     Dates: start: 20120404
  24. TERAZOSIN HYDROCHLORIDE [Concomitant]
     Indication: BLADDER DISORDER
     Route: 048
     Dates: start: 2009
  25. TRAZODONE HYDROCHLORIDE [Concomitant]
     Indication: INSOMNIA
     Route: 048
     Dates: start: 2003
  26. GABAPENTIN [Concomitant]
     Indication: BACK PAIN
     Route: 048
     Dates: end: 20120331
  27. GABAPENTIN [Concomitant]
     Indication: BACK PAIN
     Route: 048
     Dates: start: 20120404
  28. TRIAMTERENE/HYDROCHLOROTHIAZIDE [Concomitant]
     Indication: HYPERTENSION
     Dosage: HYDROCHLOROTHIAZIDE 50MG, TRIAMTERENE 75MG EVERY MORNING
     Route: 048
     Dates: start: 20120402, end: 20120403
  29. TRIAMTERENE/HYDROCHLOROTHIAZIDE [Concomitant]
     Indication: HYPERTENSION
     Dosage: HYDROCHLOROTHIAZIDE 50MG, TRIAMTERENE 75MG EVERY MORNING
     Route: 048
     Dates: start: 20120404
  30. VANCOMYCIN [Concomitant]
     Indication: MENINGITIS BACTERIAL
     Route: 042
     Dates: start: 20120401, end: 20120401
  31. VANCOMYCIN [Concomitant]
     Indication: MENINGITIS BACTERIAL
     Route: 042
     Dates: start: 20120402, end: 20120402
  32. HYDRALAZINE [Concomitant]
     Indication: HYPERTENSION
     Route: 042
     Dates: start: 20120402, end: 20120402
  33. PROMETHAZINE [Concomitant]
     Indication: NAUSEA
     Route: 042
     Dates: start: 20120402, end: 20120402
  34. AMPLODIPINE [Concomitant]
     Indication: HYPERTENSION
     Route: 048
     Dates: start: 20120403
  35. LORAZEPAM [Concomitant]
     Indication: POST-TRAUMATIC STRESS DISORDER
     Route: 042
     Dates: start: 20120403, end: 20120403
  36. HALOPERIDOL [Concomitant]
     Indication: MENTAL STATUS CHANGES
     Route: 048
     Dates: start: 20120403, end: 20120403
  37. FOLIC ACID [Concomitant]
     Indication: VITAMIN SUPPLEMENTATION
     Route: 048
     Dates: start: 20120403
  38. CEFTRIAXONE [Concomitant]
     Indication: PROPHYLAXIS
     Route: 042
     Dates: start: 20120401, end: 20120401
  39. PNU IMMUNE 23 [Concomitant]
     Indication: PROPHYLAXIS
     Route: 058
     Dates: start: 20120401, end: 20120401
  40. ACETAMINOPHEN [Concomitant]
     Indication: PYREXIA
     Dosage: 650 MG, Q4HRS, AS REQUIRED
     Route: 048
     Dates: start: 20120401, end: 20120401
  41. PRAZOSIN [Concomitant]
     Indication: HYPERTENSION
     Route: 048
     Dates: start: 20120401, end: 20120401
  42. PRAZOSIN [Concomitant]
     Indication: HYPERTENSION
     Route: 048
     Dates: start: 20120404

REACTIONS (2)
  - Mental status changes [Recovered/Resolved]
  - Tremor [Recovered/Resolved]
